FAERS Safety Report 22200269 (Version 1)
Quarter: 2023Q2

REPORT INFORMATION
  Report Type: Spontaneous
  Country: US (occurrence: US)
  Receive Date: 20230412
  Receipt Date: 20230412
  Transmission Date: 20230722
  Serious: No
  Sender: FDA-Public Use
  Company Number: US-RECORDATI RARE DISEASE INC.-2022006783

PATIENT

DRUGS (2)
  1. CARBAGLU [Suspect]
     Active Substance: CARGLUMIC ACID
     Indication: Methylmalonic acidaemia
     Dosage: 200 MILLIGRAM, BID
     Route: 065
     Dates: end: 2022
  2. CARBAGLU [Suspect]
     Active Substance: CARGLUMIC ACID
     Dosage: SHE WAS ON 600 MG DOSE
     Route: 065
     Dates: start: 2022

REACTIONS (1)
  - Ammonia abnormal [Unknown]

NARRATIVE: CASE EVENT DATE: 20220101
